FAERS Safety Report 23920939 (Version 1)
Quarter: 2024Q2

REPORT INFORMATION
  Report Type: Spontaneous
  Country: BA (occurrence: BA)
  Receive Date: 20240530
  Receipt Date: 20240530
  Transmission Date: 20240716
  Serious: Yes (Other)
  Sender: FDA-Public Use
  Company Number: BA-BAYER-2024A078133

PATIENT
  Age: 21 Year
  Sex: Male
  Weight: 186 kg

DRUGS (3)
  1. JIVI [Suspect]
     Active Substance: DAMOCTOCOG ALFA PEGOL
     Dosage: UNK UNK, BIW
     Dates: start: 2007
  2. JIVI [Suspect]
     Active Substance: DAMOCTOCOG ALFA PEGOL
     Indication: Prophylaxis
     Dosage: EVERY 5 DAYS
     Dates: start: 2023
  3. JIVI [Suspect]
     Active Substance: DAMOCTOCOG ALFA PEGOL
     Indication: Prophylaxis
     Dosage: 3000 IU, BIW
     Dates: start: 2024

REACTIONS (2)
  - Haemorrhage [None]
  - Weight decreased [None]
